FAERS Safety Report 7945230-7 (Version None)
Quarter: 2011Q4

REPORT INFORMATION
  Report Type: 
  Country: None (occurrence: None)
  Receive Date: 20111129
  Receipt Date: 20110617
  Transmission Date: 20120403
  Serious: No
  Sender: FDA-Public Use
  Company Number: US-GLAXOSMITHKLINE-A0931864A

PATIENT
  Age: 61 Year
  Sex: Female

DRUGS (5)
  1. FISH OIL [Concomitant]
  2. HYDROCHLOROTHIAZIDE [Concomitant]
  3. FLOVENT [Suspect]
     Indication: ASTHMA
     Dosage: 500MG TWICE PER DAY
     Route: 055
     Dates: start: 20110401, end: 20110608
  4. CAPTOPRIL [Concomitant]
  5. LEVOTHYROXINE SODIUM [Concomitant]

REACTIONS (5)
  - DIARRHOEA [None]
  - OVERDOSE [None]
  - NERVOUSNESS [None]
  - GASTRIC DISORDER [None]
  - INSOMNIA [None]
